FAERS Safety Report 15716453 (Version 1)
Quarter: 2018Q4

REPORT INFORMATION
  Report Type: Spontaneous
  Country: IT (occurrence: IT)
  Receive Date: 20181213
  Receipt Date: 20181213
  Transmission Date: 20190205
  Serious: Yes (Other)
  Sender: FDA-Public Use
  Company Number: IT-TEVA-2018-IT-985078

PATIENT
  Age: 77 Year
  Sex: Male
  Weight: 62 kg

DRUGS (11)
  1. MICARDIS [Concomitant]
     Active Substance: TELMISARTAN
     Indication: HYPERTENSION
     Route: 048
  2. LANSOPRAZOLE. [Concomitant]
     Active Substance: LANSOPRAZOLE
     Route: 048
  3. REPAGLINIDE EG 0.5 MG COMPRESS [Concomitant]
     Route: 048
  4. CARDIOASPIRIN 100 MG GASTROREXISTENT TABLETS [Concomitant]
     Route: 048
  5. METFORMIN [Concomitant]
     Active Substance: METFORMIN HYDROCHLORIDE
     Indication: DIABETES MELLITUS
     Route: 048
  6. OMNIC 0.4 MG, MODIFIED RELEASE RIGID CAPSULES [Concomitant]
     Route: 048
  7. LASIX [Concomitant]
     Active Substance: FUROSEMIDE
     Route: 048
  8. PACLITAXEL. [Suspect]
     Active Substance: PACLITAXEL
     Indication: ADENOCARCINOMA PANCREAS
     Route: 042
     Dates: start: 20180926, end: 20181105
  9. LOPRESOR 100 MG FILM-COATED TABLETS [Concomitant]
     Route: 048
  10. CRESTOR 10 MG FILM-COATED TABLETS [Concomitant]
     Route: 048
  11. GEMCITABINE [Suspect]
     Active Substance: GEMCITABINE\GEMCITABINE HYDROCHLORIDE
     Indication: ADENOCARCINOMA PANCREAS
     Route: 042
     Dates: start: 20180926, end: 20181105

REACTIONS (1)
  - Hypertransaminasaemia [Recovering/Resolving]

NARRATIVE: CASE EVENT DATE: 20181105
